FAERS Safety Report 14830147 (Version 1)
Quarter: 2018Q2

REPORT INFORMATION
  Report Type: Spontaneous
  Country: CN (occurrence: CN)
  Receive Date: 20180430
  Receipt Date: 20180430
  Transmission Date: 20180711
  Serious: Yes (Life-Threatening, Hospitalization, Other)
  Sender: FDA-Public Use
  Company Number: CN-BAUSCH-BL-2018-012387

PATIENT
  Age: 28 Year
  Sex: Female

DRUGS (10)
  1. ACTINOMYCIN D [Suspect]
     Active Substance: DACTINOMYCIN
     Dosage: EVERY CYCLE
     Route: 065
  2. PREDNISONE. [Concomitant]
     Active Substance: PREDNISONE
     Indication: PRODUCT USED FOR UNKNOWN INDICATION
     Route: 065
  3. 5-FU [Suspect]
     Active Substance: FLUOROURACIL
     Indication: CHORIOCARCINOMA
     Route: 065
  4. CYCLOPHOSPHAMIDE. [Suspect]
     Active Substance: CYCLOPHOSPHAMIDE
     Indication: CHORIOCARCINOMA
     Dosage: EVERY CYCLE
     Route: 065
  5. PREDNISONE. [Suspect]
     Active Substance: PREDNISONE
     Indication: CHORIOCARCINOMA
     Route: 065
  6. ETOPOSIDE. [Suspect]
     Active Substance: ETOPOSIDE
     Indication: CHORIOCARCINOMA
     Dosage: EVERY CYCLE
     Route: 065
  7. GAMMA GLOBULIN [Concomitant]
     Active Substance: IMMUNE GLOBULIN NOS
     Indication: PRODUCT USED FOR UNKNOWN INDICATION
     Route: 065
  8. VINCRISTINE [Suspect]
     Active Substance: VINCRISTINE
     Indication: CHORIOCARCINOMA
     Dosage: EVERY CYCLE
     Route: 065
  9. METHOTREXATE. [Suspect]
     Active Substance: METHOTREXATE
     Indication: CHORIOCARCINOMA
     Dosage: EVERY CYCLE
     Route: 065
  10. ACTINOMYCIN D [Suspect]
     Active Substance: DACTINOMYCIN
     Indication: CHORIOCARCINOMA
     Dosage: EVERY CYCLE
     Route: 065

REACTIONS (1)
  - Human chorionic gonadotropin increased [Recovered/Resolved]
